FAERS Safety Report 19724853 (Version 1)
Quarter: 2021Q3

REPORT INFORMATION
  Report Type: Report from Study
  Country: ES (occurrence: ES)
  Receive Date: 20210819
  Receipt Date: 20210819
  Transmission Date: 20211014
  Serious: Yes (Other)
  Sender: FDA-Public Use
  Company Number: ES-TEVA-2021-ES-1942243

PATIENT
  Age: 62 Year
  Sex: Female

DRUGS (2)
  1. PERAMPANEL [Interacting]
     Active Substance: PERAMPANEL
     Indication: ORTHOSTATIC TREMOR
     Dosage: 2 MILLIGRAM DAILY;
     Route: 065
  2. PREGABALIN. [Suspect]
     Active Substance: PREGABALIN
     Indication: TREMOR
     Route: 065

REACTIONS (4)
  - Orthostatic tremor [Unknown]
  - Gait disturbance [Unknown]
  - Rebound effect [Unknown]
  - Drug interaction [Unknown]
